FAERS Safety Report 15844425 (Version 13)
Quarter: 2019Q3

REPORT INFORMATION
  Report Type: Report from Study
  Country: US (occurrence: US)
  Receive Date: 20190118
  Receipt Date: 20190723
  Transmission Date: 20191004
  Serious: Yes (Hospitalization)
  Sender: FDA-Public Use
  Company Number: US-ACTELION-A-NJ2018-179879

PATIENT
  Age: 47 Year
  Sex: Female
  Weight: 31.75 kg

DRUGS (10)
  1. TRACLEER [Suspect]
     Active Substance: BOSENTAN
     Dosage: 125 MG, BID
     Route: 048
  2. TYVASO [Suspect]
     Active Substance: TREPROSTINIL
     Dosage: 8 BREATHS
     Route: 065
  3. REMODULIN [Concomitant]
     Active Substance: TREPROSTINIL
     Dosage: 4 NG, PER MIN
     Route: 065
     Dates: start: 20181219, end: 20181222
  4. ELIQUIS [Concomitant]
     Active Substance: APIXABAN
  5. OXYGEN. [Concomitant]
     Active Substance: OXYGEN
  6. TYVASO [Suspect]
     Active Substance: TREPROSTINIL
     Dosage: 9 BREATHS
     Route: 065
  7. REVATIO [Concomitant]
     Active Substance: SILDENAFIL CITRATE
  8. TRACLEER [Suspect]
     Active Substance: BOSENTAN
     Indication: PULMONARY HYPERTENSION
     Dosage: 125 MG, BID
     Route: 048
  9. TYVASO [Suspect]
     Active Substance: TREPROSTINIL
     Indication: PRODUCT USED FOR UNKNOWN INDICATION
     Dosage: 6 BREATHS PER TX
     Route: 065
  10. REMODULIN [Concomitant]
     Active Substance: TREPROSTINIL
     Dosage: 6 NG/KG, UNK
     Route: 065

REACTIONS (18)
  - Skin discolouration [Unknown]
  - Malaise [Unknown]
  - Dizziness exertional [Unknown]
  - Hospitalisation [Unknown]
  - Emergency care [Unknown]
  - Thrombosis [Unknown]
  - Poor peripheral circulation [Unknown]
  - Back pain [Unknown]
  - Catheter site erythema [Unknown]
  - Nausea [Unknown]
  - Rhinorrhoea [Unknown]
  - Device related infection [Unknown]
  - Cough [Unknown]
  - Fatigue [Unknown]
  - Dyspnoea exertional [Unknown]
  - Catheter site pruritus [Unknown]
  - Skin infection [Unknown]
  - Unevaluable event [Unknown]

NARRATIVE: CASE EVENT DATE: 20190220
